FAERS Safety Report 5930695-2 (Version None)
Quarter: 2008Q4

REPORT INFORMATION
  Report Type: 
  Country: None (occurrence: None)
  Receive Date: 20081024
  Receipt Date: 20081024
  Transmission Date: 20090506
  Serious: Yes (Hospitalization, Other)
  Sender: FDA-Public Use
  Company Number: None

PATIENT
  Sex: Male
  Weight: 68.0396 kg

DRUGS (2)
  1. RISPERIDONE [Suspect]
     Indication: SCHIZOPHRENIA
     Dosage: 2 MG 2 X DAILY PO
     Route: 048
     Dates: start: 20060901, end: 20081023
  2. PAROXETINE HCL EXTENDED RELEASE [Suspect]
     Indication: SCHIZOPHRENIA
     Dosage: 25MG DAILY PO
     Route: 048
     Dates: start: 20060901, end: 20081023

REACTIONS (2)
  - STAPHYLOCOCCAL SKIN INFECTION [None]
  - URINARY INCONTINENCE [None]
